FAERS Safety Report 25001111 (Version 6)
Quarter: 2025Q4

REPORT INFORMATION
  Report Type: Spontaneous
  Country: US (occurrence: US)
  Receive Date: 20250222
  Receipt Date: 20251001
  Transmission Date: 20260118
  Serious: No
  Sender: SANOFI AVENTIS
  Company Number: US-SA-2025SA053501

PATIENT
  Age: 61 Year
  Sex: Female

DRUGS (3)
  1. DUPIXENT [Suspect]
     Active Substance: DUPILUMAB
     Indication: Dermatitis atopic
     Dosage: 300 MG, QOW
     Route: 058
     Dates: start: 20250130
  2. OTEZLA [Concomitant]
     Active Substance: APREMILAST
     Dosage: UNK
  3. PREDNISONE [Concomitant]
     Active Substance: PREDNISONE
     Dosage: UNK
     Dates: end: 20250317

REACTIONS (12)
  - Osteoporosis [Unknown]
  - Injection site discolouration [Unknown]
  - Periorbital dermatitis [Unknown]
  - Condition aggravated [Unknown]
  - Dry skin [Recovering/Resolving]
  - Pruritus [Unknown]
  - Diarrhoea [Unknown]
  - Skin exfoliation [Recovering/Resolving]
  - Dermatitis atopic [Unknown]
  - Injection site swelling [Unknown]
  - Injection site pain [Unknown]
  - Incorrect dose administered [Unknown]

NARRATIVE: CASE EVENT DATE: 20250101
